FAERS Safety Report 15787169 (Version 1)
Quarter: 2019Q1

REPORT INFORMATION
  Report Type: Report from Study
  Country: ES (occurrence: ES)
  Receive Date: 20190103
  Receipt Date: 20190103
  Transmission Date: 20190417
  Serious: Yes (Hospitalization)
  Sender: FDA-Public Use
  Company Number: ES-MYLANLABS-2018M1028459

PATIENT
  Age: 84 Year
  Sex: Female

DRUGS (5)
  1. TRANSTEC [Interacting]
     Active Substance: BUPRENORPHINE
     Indication: ABDOMINAL PAIN
     Dosage: UNK, QD
     Route: 062
     Dates: start: 20160302, end: 20160304
  2. TRAZODONA                          /00447702/ [Concomitant]
     Active Substance: TRAZODONE HYDROCHLORIDE
     Indication: DEPRESSION
     Dosage: 100 MG, QD
     Route: 048
     Dates: start: 201206
  3. QUETIAPINA                         /01270901/ [Concomitant]
     Active Substance: QUETIAPINE
     Indication: INSOMNIA
     Dosage: 100 MG, QD
     Route: 048
     Dates: start: 20140505
  4. TRAMADOL. [Suspect]
     Active Substance: TRAMADOL
     Indication: ARTHRALGIA
     Dosage: 150 MG, QD
     Route: 048
     Dates: start: 20130723, end: 20160304
  5. TOLTERODINE TARTRATE. [Concomitant]
     Active Substance: TOLTERODINE TARTRATE
     Indication: URINARY INCONTINENCE
     Dosage: 2 MG, UNK
     Route: 048
     Dates: start: 20100412

REACTIONS (2)
  - Drug interaction [Unknown]
  - Confusional state [Recovered/Resolved]

NARRATIVE: CASE EVENT DATE: 20160303
